FAERS Safety Report 9319090 (Version 1)
Quarter: 2013Q2

REPORT INFORMATION
  Report Type: Spontaneous
  Country: CO (occurrence: CO)
  Receive Date: 20130530
  Receipt Date: 20130530
  Transmission Date: 20140414
  Serious: Yes (Other)
  Sender: FDA-Public Use
  Company Number: CO-PFIZER INC-2013164226

PATIENT
  Age: 75 Year
  Sex: Female

DRUGS (2)
  1. NORVAS [Suspect]
     Indication: BLOOD PRESSURE INCREASED
     Dosage: 5 MG, 1X/DAY
     Route: 048
     Dates: start: 1998
  2. ASPIRINETTA [Concomitant]
     Dosage: UNK
     Route: 065

REACTIONS (2)
  - Glaucoma [Not Recovered/Not Resolved]
  - Ocular hypertension [Not Recovered/Not Resolved]
